FAERS Safety Report 18058435 (Version 2)
Quarter: 2020Q3

REPORT INFORMATION
  Report Type: Other
  Country: CN (occurrence: CN)
  Receive Date: 20200723
  Receipt Date: 20200730
  Transmission Date: 20201103
  Serious: Yes (Other)
  Sender: FDA-Public Use
  Company Number: CN-ROCHE-2309808

PATIENT
  Age: 64 Year
  Sex: Male
  Weight: 80 kg

DRUGS (3)
  1. AVASTIN [Suspect]
     Active Substance: BEVACIZUMAB
     Indication: RECTAL CANCER
     Dosage: 100MG
     Route: 041
     Dates: start: 20170817, end: 20200602
  2. AVASTIN [Suspect]
     Active Substance: BEVACIZUMAB
     Indication: METASTASES TO LUNG
  3. AVASTIN [Suspect]
     Active Substance: BEVACIZUMAB
     Indication: CANCER SURGERY

REACTIONS (12)
  - White blood cell count decreased [Unknown]
  - Abdominal pain [Unknown]
  - Chronic gastritis [Unknown]
  - Nausea [Unknown]
  - Ascites [Unknown]
  - Cholecystitis [Unknown]
  - Incision site impaired healing [Unknown]
  - Vomiting [Unknown]
  - Cholecystitis [Unknown]
  - Cholecystectomy [Unknown]
  - Hypersplenism [Unknown]
  - Platelet count decreased [Unknown]

NARRATIVE: CASE EVENT DATE: 202007
